FAERS Safety Report 15497575 (Version 2)
Quarter: 2018Q4

REPORT INFORMATION
  Report Type: Spontaneous
  Country: US (occurrence: US)
  Receive Date: 20181015
  Receipt Date: 20181108
  Transmission Date: 20190205
  Serious: Yes (Other)
  Sender: FDA-Public Use
  Company Number: US-HIKMA PHARMACEUTICALS USA INC.-US-H14001-18-07647

PATIENT
  Age: 25 Year
  Sex: Female

DRUGS (1)
  1. LIDOCAINE HYDROCHLORIDE 1% [Suspect]
     Active Substance: LIDOCAINE HYDROCHLORIDE
     Indication: PRODUCT USED FOR UNKNOWN INDICATION
     Route: 058
     Dates: start: 20180929, end: 201809

REACTIONS (10)
  - Injection site swelling [Unknown]
  - Injection site discolouration [Unknown]
  - Drug hypersensitivity [Unknown]
  - Injection site vesicles [Unknown]
  - Injection site pain [Recovering/Resolving]
  - Injection site necrosis [Not Recovered/Not Resolved]
  - Injection site erythema [Recovering/Resolving]
  - Intentional product misuse [Recovered/Resolved]
  - Pain [Recovering/Resolving]
  - Drug ineffective [Recovered/Resolved]

NARRATIVE: CASE EVENT DATE: 201809
